FAERS Safety Report 4326039-2 (Version None)
Quarter: 2004Q1

REPORT INFORMATION
  Report Type: 
  Country: None (occurrence: None)
  Receive Date: 20040322
  Receipt Date: 20040213
  Transmission Date: 20041129
  Serious: Yes (Other)
  Sender: FDA-Public Use
  Company Number: US-JNJFOC-20040203653

PATIENT
  Age: 18 Year
  Sex: Female
  Weight: 66.6788 kg

DRUGS (1)
  1. ORTHO TRI-CYCLEN LO [Suspect]
     Indication: CONTRACEPTION
     Dosage: 1 DOSE(S), 1 IN 1 DAY, ORAL
     Route: 048
     Dates: start: 20040201, end: 20040210

REACTIONS (5)
  - ANOREXIA [None]
  - CRYING [None]
  - LETHARGY [None]
  - MAJOR DEPRESSION [None]
  - WEIGHT INCREASED [None]
